FAERS Safety Report 21723444 (Version 4)
Quarter: 2023Q2

REPORT INFORMATION
  Report Type: Spontaneous
  Country: KR (occurrence: KR)
  Receive Date: 20221213
  Receipt Date: 20230519
  Transmission Date: 20230722
  Serious: No
  Sender: FDA-Public Use
  Company Number: KR-PFIZER INC-PV202200119984

PATIENT
  Age: 15 Year
  Sex: Female

DRUGS (1)
  1. GENOTROPIN [Suspect]
     Active Substance: SOMATROPIN
     Indication: Short stature
     Dosage: 7 IU, 6 TIMES A WEEK
     Dates: start: 201804, end: 20221206

REACTIONS (4)
  - Expired device used [Unknown]
  - Device leakage [Unknown]
  - Incorrect dose administered by device [Unknown]
  - Poor quality device used [Unknown]
